FAERS Safety Report 7658182-4 (Version None)
Quarter: 2011Q3

REPORT INFORMATION
  Report Type: 
  Country: None (occurrence: None)
  Receive Date: 20110805
  Receipt Date: 20110726
  Transmission Date: 20111222
  Serious: Yes (Other)
  Sender: FDA-Public Use
  Company Number: US-JNJFOC-20080801377

PATIENT
  Age: 10 Year
  Sex: Female

DRUGS (12)
  1. ANAKINRA [Suspect]
     Indication: JUVENILE ARTHRITIS
  2. CYCLOPHOSPHAMIDE [Suspect]
     Indication: JUVENILE ARTHRITIS
     Route: 042
  3. THALIDOMIDE [Suspect]
     Indication: JUVENILE ARTHRITIS
  4. LEFLUNOMIDE [Suspect]
     Indication: JUVENILE ARTHRITIS
  5. ADALIMUMAB [Suspect]
     Indication: JUVENILE ARTHRITIS
  6. RITUXIMAB [Suspect]
     Indication: JUVENILE ARTHRITIS
  7. METHOTREXATE [Suspect]
     Indication: JUVENILE ARTHRITIS
  8. ETANERCEPT [Suspect]
     Indication: JUVENILE ARTHRITIS
  9. INFLIXIMAB [Suspect]
     Route: 042
  10. PREDNISONE [Suspect]
     Indication: JUVENILE ARTHRITIS
     Dosage: UNSPECIFIED LOW DOSE
  11. INFLIXIMAB [Suspect]
     Indication: JUVENILE ARTHRITIS
     Route: 042
  12. INFLIXIMAB [Suspect]
     Route: 042

REACTIONS (2)
  - ANAPHYLACTIC REACTION [None]
  - HODGKIN'S DISEASE [None]
